FAERS Safety Report 10383682 (Version 2)
Quarter: 2014Q3

REPORT INFORMATION
  Report Type: Spontaneous
  Country: US (occurrence: None)
  Receive Date: 20140811
  Receipt Date: 20140918
  Transmission Date: 20150326
  Serious: Yes (Other)
  Sender: FDA-Public Use
  Company Number: 2014-US-009598

PATIENT
  Age: 46 Year
  Sex: Female

DRUGS (1)
  1. XYREM [Suspect]
     Active Substance: SODIUM OXYBATE
     Indication: NARCOLEPSY
     Route: 048
     Dates: start: 201309, end: 2013

REACTIONS (2)
  - Sinus disorder [None]
  - Crohn^s disease [None]

NARRATIVE: CASE EVENT DATE: 20140628
